FAERS Safety Report 16208475 (Version 3)
Quarter: 2019Q2

REPORT INFORMATION
  Report Type: Spontaneous
  Country: US (occurrence: US)
  Receive Date: 20190417
  Receipt Date: 20190508
  Transmission Date: 20190711
  Serious: Yes (Other)
  Sender: FDA-Public Use
  Company Number: US-009507513-1904USA004865

PATIENT
  Age: 32 Year
  Sex: Female
  Weight: 87.53 kg

DRUGS (2)
  1. NEXPLANON [Suspect]
     Active Substance: ETONOGESTREL
     Dosage: 1 IMPLANT
     Route: 059
     Dates: start: 20190401, end: 20190409
  2. NEXPLANON [Suspect]
     Active Substance: ETONOGESTREL
     Dosage: A NEW DEVICE
     Route: 059
     Dates: start: 20190409

REACTIONS (4)
  - Device dislocation [Recovered/Resolved]
  - Implant site pain [Recovered/Resolved]
  - Complication associated with device [Recovered/Resolved]
  - Product quality issue [Unknown]

NARRATIVE: CASE EVENT DATE: 20190401
